FAERS Safety Report 4610135-6 (Version None)
Quarter: 2005Q1

REPORT INFORMATION
  Report Type: 
  Country: None (occurrence: None)
  Receive Date: 20050316
  Receipt Date: 20050304
  Transmission Date: 20050727
  Serious: Yes (Hospitalization, Other)
  Sender: FDA-Public Use
  Company Number: DE-JNJFOC-20050301445

PATIENT
  Age: 22 Year
  Sex: Male

DRUGS (4)
  1. HALDOL [Suspect]
     Route: 049
  2. HALDOL [Suspect]
     Route: 049
  3. HALDOL [Suspect]
     Route: 049
  4. HALDOL [Suspect]
     Indication: SCHIZOPHRENIA
     Route: 049

REACTIONS (1)
  - PLEUROTHOTONUS [None]
